FAERS Safety Report 17244116 (Version 1)
Quarter: 2020Q1

REPORT INFORMATION
  Report Type: Spontaneous
  Country: US (occurrence: US)
  Receive Date: 20200107
  Receipt Date: 20200107
  Transmission Date: 20200409
  Serious: No
  Sender: FDA-Public Use
  Company Number: US-AMNEAL PHARMACEUTICALS-2019AMN00922

PATIENT
  Age: 6 Year
  Sex: Male
  Weight: 25.85 kg

DRUGS (2)
  1. GUANFACINE. [Suspect]
     Active Substance: GUANFACINE
     Indication: ANXIETY
     Dosage: 0.25 TABLETS, 1X/DAY
     Route: 048
     Dates: start: 20190612, end: 20190616
  2. GUANFACINE. [Suspect]
     Active Substance: GUANFACINE
     Indication: IMPULSE-CONTROL DISORDER

REACTIONS (4)
  - Hypersensitivity [Recovered/Resolved]
  - Feeling hot [Recovered/Resolved]
  - Oral pruritus [Recovered/Resolved]
  - Abdominal pain upper [Recovered/Resolved]

NARRATIVE: CASE EVENT DATE: 20190615
